FAERS Safety Report 16282270 (Version 1)
Quarter: 2019Q2

REPORT INFORMATION
  Report Type: Report from Study
  Country: US (occurrence: US)
  Receive Date: 20190507
  Receipt Date: 20190507
  Transmission Date: 20190711
  Serious: Yes (Hospitalization)
  Sender: FDA-Public Use
  Company Number: US-EISAI MEDICAL RESEARCH-EC-2017-027301

PATIENT
  Age: 59 Year
  Sex: Female
  Weight: 120.6 kg

DRUGS (32)
  1. VITAMIN B12 [Concomitant]
     Active Substance: CYANOCOBALAMIN
  2. VITAMIN D3 [Concomitant]
     Active Substance: CHOLECALCIFEROL
  3. FLONASE [Concomitant]
     Active Substance: FLUTICASONE PROPIONATE
  4. PROCHLORPERAZINE. [Concomitant]
     Active Substance: PROCHLORPERAZINE
  5. PNV [Concomitant]
  6. NEXIUM [Concomitant]
     Active Substance: ESOMEPRAZOLE MAGNESIUM
  7. COMPAZINE [Concomitant]
     Active Substance: PROCHLORPERAZINE MALEATE
  8. LOTRIMIN [Concomitant]
     Active Substance: CLOTRIMAZOLE
  9. ALLEGRA-D [Concomitant]
     Active Substance: FEXOFENADINE\PSEUDOEPHEDRINE
  10. NYSTATIN. [Concomitant]
     Active Substance: NYSTATIN
  11. SYNTHROID [Concomitant]
     Active Substance: LEVOTHYROXINE SODIUM
  12. LIDODERM [Concomitant]
     Active Substance: LIDOCAINE
  13. ALBUTEROL SULFATE. [Concomitant]
     Active Substance: ALBUTEROL SULFATE
  14. MOTRIN [Concomitant]
     Active Substance: IBUPROFEN
  15. PEMBROLIZUMAB. [Suspect]
     Active Substance: PEMBROLIZUMAB
     Indication: TRIPLE NEGATIVE BREAST CANCER
     Route: 041
     Dates: start: 20160726, end: 20170314
  16. B COMPLEX-C [Concomitant]
  17. VITAMIN B-6 [Concomitant]
     Active Substance: PYRIDOXINE
  18. GLUCOPHAGE [Concomitant]
     Active Substance: METFORMIN HYDROCHLORIDE
  19. ADVAIR DISKUS [Concomitant]
     Active Substance: FLUTICASONE PROPIONATE\SALMETEROL XINAFOATE
  20. NORCO [Concomitant]
     Active Substance: ACETAMINOPHEN\HYDROCODONE BITARTRATE
  21. DICLOFENAC SODIUM. [Concomitant]
     Active Substance: DICLOFENAC SODIUM
  22. TYLENOL [Concomitant]
     Active Substance: ACETAMINOPHEN
  23. ERIBULIN [Suspect]
     Active Substance: ERIBULIN
     Indication: TRIPLE NEGATIVE BREAST CANCER
     Route: 041
     Dates: start: 20160726, end: 20170321
  24. DIFLUCAN [Concomitant]
     Active Substance: FLUCONAZOLE
  25. FOLIC ACID. [Concomitant]
     Active Substance: FOLIC ACID
  26. VITAMIN C [Concomitant]
     Active Substance: ASCORBIC ACID
  27. LISINOPRIL. [Concomitant]
     Active Substance: LISINOPRIL
  28. MULTIVITAMIN [Concomitant]
     Active Substance: VITAMINS
  29. MAGNESIUM [Concomitant]
     Active Substance: MAGNESIUM
  30. POTASSIUM [Concomitant]
     Active Substance: POTASSIUM
  31. ZOCOR [Concomitant]
     Active Substance: SIMVASTATIN
  32. PYRIDOXINE [Concomitant]
     Active Substance: PYRIDOXINE

REACTIONS (2)
  - Adrenal insufficiency [Recovered/Resolved]
  - Neutropenia [Recovered/Resolved]

NARRATIVE: CASE EVENT DATE: 20170327
